FAERS Safety Report 11201591 (Version 1)
Quarter: 2015Q2

REPORT INFORMATION
  Report Type: Spontaneous
  Country: US (occurrence: None)
  Receive Date: 20150617
  Receipt Date: 20150617
  Transmission Date: 20150821
  Serious: Yes (Life-Threatening, Hospitalization)
  Sender: FDA-Public Use
  Company Number: None

PATIENT
  Age: 66 Year
  Sex: Male
  Weight: 77 kg

DRUGS (2)
  1. METHYLPREDNISOLONE. [Suspect]
     Active Substance: METHYLPREDNISOLONE
     Indication: MANIA
     Route: 048
     Dates: start: 20150323, end: 20150326
  2. METHYLPREDNISOLONE. [Suspect]
     Active Substance: METHYLPREDNISOLONE
     Indication: BIPOLAR DISORDER
     Route: 048
     Dates: start: 20150323, end: 20150326

REACTIONS (5)
  - Blood culture positive [None]
  - Mania [None]
  - Blood pressure increased [None]
  - Acute myocardial infarction [None]
  - Confusional state [None]

NARRATIVE: CASE EVENT DATE: 20150326
